FAERS Safety Report 9226023 (Version 6)
Quarter: 2014Q2

REPORT INFORMATION
  Report Type: Spontaneous
  Country: US (occurrence: US)
  Receive Date: 20130411
  Receipt Date: 20140501
  Transmission Date: 20141212
  Serious: Yes (Hospitalization, Other)
  Sender: FDA-Public Use
  Company Number: US-009507513-1304USA003836

PATIENT
  Sex: Male

DRUGS (4)
  1. PROPECIA [Suspect]
     Indication: ALOPECIA
     Dosage: 1 MG, QD
     Route: 048
     Dates: start: 20030602, end: 20051123
  2. PROPECIA [Suspect]
     Dosage: 1 MG, QD
     Route: 048
     Dates: start: 20060103, end: 20080626
  3. PROPECIA [Suspect]
     Dosage: 1 MG, QD
     Route: 048
     Dates: start: 20080709, end: 20090509
  4. PROPECIA [Suspect]
     Dosage: 1 MG, QD
     Route: 048
     Dates: start: 20090823, end: 20110121

REACTIONS (6)
  - Cerebrovascular accident [Unknown]
  - Diverticulitis [Unknown]
  - Cognitive disorder [Not Recovered/Not Resolved]
  - Sexual dysfunction [Not Recovered/Not Resolved]
  - Depression [Not Recovered/Not Resolved]
  - Hair transplant [Unknown]
